FAERS Safety Report 21013656 (Version 1)
Quarter: 2022Q2

REPORT INFORMATION
  Report Type: Spontaneous
  Country: US (occurrence: US)
  Receive Date: 20220627
  Receipt Date: 20220627
  Transmission Date: 20220721
  Serious: No
  Sender: FDA-Public Use
  Company Number: US-SA-SAC20220621001913

PATIENT
  Sex: Male

DRUGS (12)
  1. AUBAGIO [Suspect]
     Active Substance: TERIFLUNOMIDE
     Indication: Multiple sclerosis
     Dosage: 1 DF, QD
     Route: 048
     Dates: start: 201811
  2. LORATADINE D [Concomitant]
     Active Substance: LORATADINE\PSEUDOEPHEDRINE SULFATE
  3. CITALOPRAM [Concomitant]
     Active Substance: CITALOPRAM HYDROBROMIDE
  4. BACLOFEN [Concomitant]
     Active Substance: BACLOFEN
  5. FISH OIL [Concomitant]
     Active Substance: FISH OIL
  6. IRON [Concomitant]
     Active Substance: IRON
  7. GABAPENTIN [Concomitant]
     Active Substance: GABAPENTIN
  8. TRAZODONE HYDROCHLORIDE [Concomitant]
     Active Substance: TRAZODONE HYDROCHLORIDE
  9. LEVOTHYROXINE SODIUM [Concomitant]
     Active Substance: LEVOTHYROXINE SODIUM
  10. TAPAZOLE [Concomitant]
     Active Substance: METHIMAZOLE
  11. PIROXICAM [Concomitant]
     Active Substance: PIROXICAM
  12. FEXOFENADINE [Concomitant]
     Active Substance: FEXOFENADINE HYDROCHLORIDE

REACTIONS (2)
  - Fall [Unknown]
  - Arthralgia [Unknown]
